FAERS Safety Report 19276830 (Version 2)
Quarter: 2021Q2

REPORT INFORMATION
  Report Type: Spontaneous
  Country: US (occurrence: US)
  Receive Date: 20210519
  Receipt Date: 20210611
  Transmission Date: 20210717
  Serious: Yes (Hospitalization, Other)
  Sender: FDA-Public Use
  Company Number: US-009507513-2105USA002488

PATIENT
  Sex: Female

DRUGS (13)
  1. FOLIC ACID. [Concomitant]
     Active Substance: FOLIC ACID
  2. ASPIRINE [Concomitant]
     Active Substance: ASPIRIN
  3. METFORMIN [Suspect]
     Active Substance: METFORMIN HYDROCHLORIDE
     Indication: DIABETES MELLITUS
     Dosage: 500 MILLIGRAM (2 TABLETS), TWICE DAILY
     Route: 048
     Dates: start: 2018
  4. PRINIVIL [Concomitant]
     Active Substance: LISINOPRIL
  5. FENOFIBRATE. [Concomitant]
     Active Substance: FENOFIBRATE
  6. GLIMEPIRIDE. [Concomitant]
     Active Substance: GLIMEPIRIDE
  7. METOPROLOL. [Concomitant]
     Active Substance: METOPROLOL
  8. JANUMET [Suspect]
     Active Substance: METFORMIN HYDROCHLORIDE\SITAGLIPTIN PHOSPHATE
     Indication: DIABETES MELLITUS
     Dosage: 50/1000MG (ONE TABLET), TWICE DAILY
     Route: 048
  9. IRON [Concomitant]
     Active Substance: IRON
     Dosage: FORMULATION PILL
  10. JARDIANCE [Concomitant]
     Active Substance: EMPAGLIFLOZIN
  11. LIVALO [Concomitant]
     Active Substance: PITAVASTATIN CALCIUM
  12. TRULICITY [Concomitant]
     Active Substance: DULAGLUTIDE
  13. D?3 [Concomitant]
     Active Substance: CHOLECALCIFEROL

REACTIONS (3)
  - Cholecystectomy [Recovered/Resolved]
  - Diarrhoea [Recovered/Resolved]
  - Lung neoplasm malignant [Recovered/Resolved]

NARRATIVE: CASE EVENT DATE: 2020
